FAERS Safety Report 19966693 (Version 1)
Quarter: 2021Q4

REPORT INFORMATION
  Report Type: Spontaneous
  Country: CA (occurrence: CA)
  Receive Date: 20211019
  Receipt Date: 20211019
  Transmission Date: 20220303
  Serious: Yes (Other)
  Sender: FDA-Public Use
  Company Number: CA-ROCHE-2934507

PATIENT
  Age: 55 Year
  Sex: Male

DRUGS (13)
  1. ACTEMRA [Suspect]
     Active Substance: TOCILIZUMAB
     Indication: Rheumatoid arthritis
     Route: 058
  2. RITUXIMAB [Suspect]
     Active Substance: RITUXIMAB
     Indication: Rheumatoid arthritis
     Route: 065
  3. ACETAMINOPHEN [Concomitant]
     Active Substance: ACETAMINOPHEN
  4. CALCIUM [Concomitant]
     Active Substance: CALCIUM
  5. CEFIXIME [Concomitant]
     Active Substance: CEFIXIME
  6. DIPHENHYDRAMINE HYDROCHLORIDE [Concomitant]
     Active Substance: DIPHENHYDRAMINE HYDROCHLORIDE
  7. DRONABINOL [Concomitant]
     Active Substance: DRONABINOL
  8. ERELZI [Concomitant]
     Active Substance: ETANERCEPT-SZZS
  9. METHYLPREDNISOLONE [Concomitant]
     Active Substance: METHYLPREDNISOLONE
  10. PREDNISONE [Concomitant]
     Active Substance: PREDNISONE
  11. RABEPRAZOLE [Concomitant]
     Active Substance: RABEPRAZOLE
  12. ACETAMINOPHEN;CODEINE PHOSPHATE;IBUPROFEN [Concomitant]
  13. ROSUVASTATIN [Concomitant]
     Active Substance: ROSUVASTATIN

REACTIONS (2)
  - Epididymitis [Not Recovered/Not Resolved]
  - Myocardial infarction [Not Recovered/Not Resolved]
